FAERS Safety Report 11933468 (Version 1)
Quarter: 2016Q1

REPORT INFORMATION
  Report Type: Spontaneous
  Country: US (occurrence: US)
  Receive Date: 20160121
  Receipt Date: 20160121
  Transmission Date: 20160526
  Serious: No
  Sender: FDA-Public Use
  Company Number: US-TEVA-586064USA

PATIENT
  Sex: Female
  Weight: 61.74 kg

DRUGS (1)
  1. MIRTAZAPINE. [Suspect]
     Active Substance: MIRTAZAPINE
     Indication: MAJOR DEPRESSION
     Route: 065
     Dates: start: 20150710

REACTIONS (6)
  - Burning sensation [Unknown]
  - Headache [Unknown]
  - Hypoaesthesia [Unknown]
  - Paraesthesia [Unknown]
  - Drug effect increased [Unknown]
  - Blood pressure increased [Unknown]
